FAERS Safety Report 6795521-0 (Version None)
Quarter: 2010Q2

REPORT INFORMATION
  Report Type: 
  Country: None (occurrence: None)
  Receive Date: 20100622
  Receipt Date: 20100609
  Transmission Date: 20101027
  Serious: Yes (Life-Threatening, Hospitalization, Disabling, Other)
  Sender: FDA-Public Use
  Company Number: 2010AL003515

PATIENT
  Age: 18 Year
  Sex: Female

DRUGS (2)
  1. DIAZEPAM TAB [Suspect]
     Dosage: 5 MG; BID
  2. CERVARIX [Concomitant]

REACTIONS (11)
  - ABNORMAL BEHAVIOUR [None]
  - AGITATION [None]
  - CEREBRAL DISORDER [None]
  - CONVULSION [None]
  - EMOTIONAL DISORDER [None]
  - ENCEPHALITIS [None]
  - GROIN ABSCESS [None]
  - HALLUCINATION, AUDITORY [None]
  - IMPULSE-CONTROL DISORDER [None]
  - PETIT MAL EPILEPSY [None]
  - TARDIVE DYSKINESIA [None]
